FAERS Safety Report 10270933 (Version 4)
Quarter: 2014Q3

REPORT INFORMATION
  Report Type: Spontaneous
  Country: JP (occurrence: None)
  Receive Date: 20140626
  Receipt Date: 20140905
  Transmission Date: 20150326
  Serious: Yes (Death, Hospitalization)
  Sender: FDA-Public Use
  Company Number: ABR_01711_2014

PATIENT
  Age: 82 Year
  Sex: Male

DRUGS (2)
  1. RINDERON V [Concomitant]
     Active Substance: BETAMETHASONE VALERATE
  2. GLIADEL [Suspect]
     Active Substance: CARMUSTINE
     Indication: GLIOBLASTOMA
     Dosage: (8 DF 1X [61.6 MG] INTRACEREBRAL)
     Dates: start: 20140529

REACTIONS (3)
  - Cerebral infarction [None]
  - Sepsis [None]
  - Drug ineffective [None]

NARRATIVE: CASE EVENT DATE: 20140604
